FAERS Safety Report 7950660-3 (Version None)
Quarter: 2011Q4

REPORT INFORMATION
  Report Type: 
  Country: None (occurrence: None)
  Receive Date: 20111201
  Receipt Date: 20111119
  Transmission Date: 20120403
  Serious: Yes (Other)
  Sender: FDA-Public Use
  Company Number: GR-PAR PHARMACEUTICAL, INC-2011SCPR003438

PATIENT

DRUGS (21)
  1. MELPHALAN HYDROCHLORIDE [Suspect]
     Indication: HODGKIN'S DISEASE
     Dosage: UNK, UNKNOWN
     Route: 065
     Dates: start: 20020501
  2. CYCLOPHOSPHAMIDE [Suspect]
     Indication: HODGKIN'S DISEASE
     Dosage: UNK, UNKNOWN
     Route: 065
  3. PROCARBAZINE HYDROCHLORIDE [Suspect]
     Indication: HODGKIN'S DISEASE
     Dosage: UNK, UNKNOWN
     Route: 065
  4. PREDNISONE TAB [Suspect]
     Indication: HODGKIN'S DISEASE
     Dosage: UNK, UNKNOWN
     Route: 065
  5. VINBLASTINE SULFATE [Suspect]
     Indication: HODGKIN'S DISEASE
     Dosage: UNK, UNKNOWN
     Route: 065
  6. DOXORUBICIN HCL [Suspect]
     Indication: HODGKIN'S DISEASE
     Dosage: UNK, UNKNOWN
     Route: 065
  7. CISPLATIN [Suspect]
     Indication: HODGKIN'S DISEASE
     Dosage: UNK, UNKNOWN
     Route: 065
  8. ETOPOSIDE [Suspect]
     Indication: SALVAGE THERAPY
  9. CYTARABINE [Suspect]
     Indication: HODGKIN'S DISEASE
     Dosage: UNK, UNKNOWN
     Route: 065
     Dates: start: 20020501
  10. VINCRISTINE [Suspect]
     Indication: HODGKIN'S DISEASE
     Dosage: UNK, UNKNOWN
     Route: 065
  11. PREDNISOLONE [Suspect]
     Indication: HODGKIN'S DISEASE
     Dosage: UNK, UNKNOWN
     Route: 065
  12. CHLORMETHINE [Suspect]
     Indication: HODGKIN'S DISEASE
     Dosage: UNK, UNKNOWN
     Route: 065
  13. CARMUSTINE [Suspect]
     Indication: HODGKIN'S DISEASE
     Dosage: UNK, UNKNOWN
     Route: 065
     Dates: start: 20020501
  14. IFOSFAMIDE [Suspect]
     Indication: SALVAGE THERAPY
  15. DEXAMETHASONE [Suspect]
     Indication: HODGKIN'S DISEASE
     Dosage: UNK, UNKNOWN
     Route: 065
  16. DEXAMETHASONE [Suspect]
     Indication: SALVAGE THERAPY
  17. BLEOMYCIN SULFATE [Suspect]
     Indication: HODGKIN'S DISEASE
     Dosage: UNK, UNKNOWN
     Route: 065
  18. IFOSFAMIDE [Suspect]
     Indication: HODGKIN'S DISEASE
     Dosage: UNK, UNKNOWN
     Route: 065
  19. DACARBAZINE [Suspect]
     Indication: HODGKIN'S DISEASE
     Dosage: UNK, UNKNOWN
     Route: 065
  20. CISPLATIN [Suspect]
     Indication: SALVAGE THERAPY
  21. ETOPOSIDE [Suspect]
     Indication: HODGKIN'S DISEASE
     Dosage: UNK, UNKNOWN
     Route: 065
     Dates: start: 20020501

REACTIONS (2)
  - REFRACTORY CYTOPENIA WITH MULTILINEAGE DYSPLASIA [None]
  - CYTOGENETIC ABNORMALITY [None]
